FAERS Safety Report 7289052-1 (Version None)
Quarter: 2011Q1

REPORT INFORMATION
  Report Type: 
  Country: None (occurrence: None)
  Receive Date: 20110211
  Receipt Date: 20110210
  Transmission Date: 20110831
  Serious: Yes (Death, Hospitalization)
  Sender: FDA-Public Use
  Company Number: FR-PFIZER INC-2011005505

PATIENT
  Age: 64 Year
  Sex: Male

DRUGS (2)
  1. SUNITINIB MALATE [Suspect]
     Dosage: 25 MG, FREQUENCY UNKNOWN
     Dates: start: 20101018, end: 20101208
  2. AMLODIPINE/VALSARTAN [Concomitant]
     Indication: HYPERTENSION
     Dosage: 1 DF, 1X/DAY

REACTIONS (4)
  - RENAL CANCER METASTATIC [None]
  - APHASIA [None]
  - HEMIPARESIS [None]
  - DISEASE PROGRESSION [None]
